FAERS Safety Report 13844762 (Version 1)
Quarter: 2017Q3

REPORT INFORMATION
  Report Type: Spontaneous
  Country: US (occurrence: US)
  Receive Date: 20170808
  Receipt Date: 20170808
  Transmission Date: 20171127
  Serious: No
  Sender: FDA-Public Use
  Company Number: US-PFIZER INC-2017336872

PATIENT
  Sex: Female

DRUGS (4)
  1. AMLODIPINE BESILATE [Suspect]
     Active Substance: AMLODIPINE BESYLATE
     Dosage: 10 MG, UNK
  2. LIPITOR [Suspect]
     Active Substance: ATORVASTATIN CALCIUM
     Dosage: 40 MG, UNK
  3. METHOTREXATE. [Suspect]
     Active Substance: METHOTREXATE
     Dosage: 4 DF, WEEKLY
  4. LYRICA [Suspect]
     Active Substance: PREGABALIN
     Dosage: 100 MG, UNK

REACTIONS (24)
  - Arthralgia [Unknown]
  - Joint swelling [Unknown]
  - Musculoskeletal stiffness [Unknown]
  - Dry eye [Unknown]
  - Dry mouth [Unknown]
  - Balance disorder [Unknown]
  - Hypertension [Unknown]
  - Dyspnoea [Unknown]
  - Fatigue [Unknown]
  - Upper respiratory tract infection [Unknown]
  - Cough [Unknown]
  - Peripheral swelling [Unknown]
  - Muscular weakness [Unknown]
  - Muscle spasms [Unknown]
  - Synovial disorder [Unknown]
  - Pain in extremity [Unknown]
  - Hypoaesthesia [Unknown]
  - Dizziness [Unknown]
  - Abdominal pain upper [Unknown]
  - Dysaesthesia [Unknown]
  - Pyrexia [Unknown]
  - Myalgia [Unknown]
  - Neck pain [Unknown]
  - Paraesthesia [Unknown]
